FAERS Safety Report 7504228-3 (Version None)
Quarter: 2011Q2

REPORT INFORMATION
  Report Type: 
  Country: None (occurrence: None)
  Receive Date: 20110525
  Receipt Date: 20110509
  Transmission Date: 20111010
  Serious: Yes (Hospitalization, Other)
  Sender: FDA-Public Use
  Company Number: US-BAYER-201038547NA

PATIENT
  Age: 33 Year
  Sex: Female
  Weight: 76 kg

DRUGS (1)
  1. YASMIN [Suspect]
     Indication: PRODUCT USED FOR UNKNOWN INDICATION
     Route: 048

REACTIONS (9)
  - INFERTILITY [None]
  - CHEST PAIN [None]
  - ANXIETY [None]
  - DYSPNOEA [None]
  - ENDOMETRIOSIS [None]
  - OEDEMA [None]
  - DEPRESSION [None]
  - PULMONARY EMBOLISM [None]
  - PANIC ATTACK [None]
